FAERS Safety Report 6461461-X (Version None)
Quarter: 2009Q4

REPORT INFORMATION
  Report Type: 
  Country: None (occurrence: None)
  Receive Date: 20091123
  Receipt Date: 20091112
  Transmission Date: 20100525
  Serious: Yes (Death)
  Sender: FDA-Public Use
  Company Number: DE-1171348

PATIENT
  Age: 92 Year
  Sex: Female

DRUGS (3)
  1. FLUORESCEIN SODIUM     (FLUORESCEIN SODIUM) [Suspect]
     Indication: ANGIOGRAM RETINA
     Dosage: 5 ML (2ML/S) INTRAVENOUS BOLUS
     Route: 040
     Dates: start: 20091020, end: 20091020
  2. FUROSEMIDE [Concomitant]
  3. RAMIPRIL [Concomitant]

REACTIONS (13)
  - ASTHENIA [None]
  - BLOOD PRESSURE DECREASED [None]
  - CARDIAC ARREST [None]
  - CARDIAC DISORDER [None]
  - CARDIOVASCULAR DISORDER [None]
  - DIZZINESS [None]
  - DYSPNOEA [None]
  - FATIGUE [None]
  - HYPERHIDROSIS [None]
  - HYPOTONIA [None]
  - NAUSEA [None]
  - PULMONARY CONGESTION [None]
  - VOMITING [None]
